FAERS Safety Report 7135727-4 (Version None)
Quarter: 2010Q4

REPORT INFORMATION
  Report Type: 
  Country: None (occurrence: None)
  Receive Date: 20101203
  Receipt Date: 20101123
  Transmission Date: 20110411
  Serious: Yes (Hospitalization)
  Sender: FDA-Public Use
  Company Number: AT-ELI_LILLY_AND_COMPANY-AT201011005790

PATIENT
  Sex: Male
  Weight: 80 kg

DRUGS (3)
  1. EFFIENT [Suspect]
     Indication: IN-STENT ARTERIAL RESTENOSIS
     Dosage: 60 MG, OTHER (ONCE AS LOADING DOSE)
     Route: 065
     Dates: start: 20101102
  2. EFFIENT [Suspect]
     Dosage: 10 MG, UNKNOWN
     Route: 048
     Dates: start: 20101101
  3. EFFIENT [Suspect]
     Dosage: 20 MG, DAILY (1/D)
     Route: 048

REACTIONS (3)
  - DRUG INEFFECTIVE [None]
  - HOSPITALISATION [None]
  - OVERDOSE [None]
